FAERS Safety Report 10270793 (Version 2)
Quarter: 2014Q3

REPORT INFORMATION
  Report Type: Report from Study
  Country: CO (occurrence: CO)
  Receive Date: 20140701
  Receipt Date: 20140701
  Transmission Date: 20150326
  Serious: Yes (Other)
  Sender: FDA-Public Use
  Company Number: CO-ABBVIE-14P-036-1253816-00

PATIENT
  Age: 47 Year
  Sex: Male
  Weight: 86 kg

DRUGS (2)
  1. HUMIRA [Suspect]
     Active Substance: ADALIMUMAB
     Indication: ANKYLOSING SPONDYLITIS
     Route: 058
     Dates: start: 20130812, end: 20140616
  2. TRAMADOL [Concomitant]
     Active Substance: TRAMADOL
     Indication: PRODUCT USED FOR UNKNOWN INDICATION
     Dosage: 6 DROOPS IN THE NIGHT

REACTIONS (5)
  - Pruritus [Not Recovered/Not Resolved]
  - Hypersensitivity [Not Recovered/Not Resolved]
  - Rash erythematous [Not Recovered/Not Resolved]
  - Psoriasis [Not Recovered/Not Resolved]
  - Oral herpes [Unknown]

NARRATIVE: CASE EVENT DATE: 20130812
